FAERS Safety Report 7327833-6 (Version None)
Quarter: 2011Q1

REPORT INFORMATION
  Report Type: 
  Country: None (occurrence: None)
  Receive Date: 20110303
  Receipt Date: 20110228
  Transmission Date: 20110831
  Serious: No
  Sender: FDA-Public Use
  Company Number: US-PFIZER INC-2011043036

PATIENT
  Sex: Male
  Weight: 82.54 kg

DRUGS (6)
  1. VIAGRA [Suspect]
     Indication: ERECTILE DYSFUNCTION
     Dosage: 100 MG, UNK
     Route: 048
     Dates: start: 20070101, end: 20110201
  2. NAPROXEN [Concomitant]
     Indication: ARTHRITIS
     Dosage: 500 MG, 2X/DAY
     Route: 048
  3. VITAMIN E [Concomitant]
     Indication: MEDICAL DIET
     Dosage: UNK
  4. CIALIS [Suspect]
     Indication: ERECTILE DYSFUNCTION
     Dosage: 20 MG, UNK
     Route: 048
  5. ASCORBIC ACID [Concomitant]
     Indication: MEDICAL DIET
     Dosage: UNK
  6. FISH OIL [Concomitant]
     Indication: MEDICAL DIET
     Dosage: UNK

REACTIONS (1)
  - DRUG INEFFECTIVE [None]
